FAERS Safety Report 6220081-2 (Version None)
Quarter: 2009Q2

REPORT INFORMATION
  Report Type: 
  Country: None (occurrence: None)
  Receive Date: 20090609
  Receipt Date: 20090527
  Transmission Date: 20091009
  Serious: Yes (Other)
  Sender: FDA-Public Use
  Company Number: US-ELI_LILLY_AND_COMPANY-US200905005491

PATIENT
  Sex: Male

DRUGS (6)
  1. HUMALOG MIX 75/25 [Suspect]
  2. ASPIRIN [Concomitant]
  3. CYMBALTA [Concomitant]
  4. ATENOLOL [Concomitant]
  5. DIVALPROEX SODIUM [Concomitant]
  6. OMEPRAZOLE [Concomitant]

REACTIONS (2)
  - EYE HAEMORRHAGE [None]
  - VISUAL ACUITY REDUCED [None]
